FAERS Safety Report 7392669-7 (Version None)
Quarter: 2011Q2

REPORT INFORMATION
  Report Type: 
  Country: None (occurrence: None)
  Receive Date: 20110404
  Receipt Date: 20110321
  Transmission Date: 20111010
  Serious: Yes (Other)
  Sender: FDA-Public Use
  Company Number: US-JNJFOC-20110308760

PATIENT
  Sex: Female
  Weight: 127.01 kg

DRUGS (2)
  1. REMICADE [Suspect]
     Indication: PRODUCT USED FOR UNKNOWN INDICATION
     Route: 042
  2. REMICADE [Suspect]
     Route: 042

REACTIONS (7)
  - MUSCLE SPASMS [None]
  - DYSPNOEA [None]
  - THROAT TIGHTNESS [None]
  - ASTHENIA [None]
  - HEADACHE [None]
  - INFUSION RELATED REACTION [None]
  - BONE PAIN [None]
